FAERS Safety Report 15396095 (Version 1)
Quarter: 2018Q3

REPORT INFORMATION
  Report Type: Spontaneous
  Country: US (occurrence: US)
  Receive Date: 20180912
  Receipt Date: 20180912
  Transmission Date: 20181010
  Serious: No
  Sender: FDA-Public Use
  Company Number: None

PATIENT
  Age: 69 Year
  Sex: Female
  Weight: 47.25 kg

DRUGS (1)
  1. PANTOPRAZOLE SODIUM EC 20 MG TAB AUTO [Suspect]
     Active Substance: PANTOPRAZOLE SODIUM
     Indication: GASTROOESOPHAGEAL REFLUX DISEASE
     Dosage: ?          QUANTITY:15 TABLET(S);OTHER FREQUENCY:EVERY OTHER DAY;?
     Route: 048
     Dates: start: 20180901, end: 20180901

REACTIONS (1)
  - Urticaria [None]

NARRATIVE: CASE EVENT DATE: 20180902
